FAERS Safety Report 5254281-5 (Version None)
Quarter: 2007Q1

REPORT INFORMATION
  Report Type: 
  Country: None (occurrence: None)
  Receive Date: 20070302
  Receipt Date: 20070221
  Transmission Date: 20070707
  Serious: Yes (Life-Threatening)
  Sender: FDA-Public Use
  Company Number: FR-GLAXOSMITHKLINE-B0459662A

PATIENT
  Age: 87 Year
  Sex: Male
  Weight: 55 kg

DRUGS (2)
  1. AUGMENTIN '125' [Suspect]
     Indication: PNEUMONIA BACTERIAL
     Dosage: 1G THREE TIMES PER DAY
     Route: 042
     Dates: start: 20070130, end: 20070131
  2. LASIX [Concomitant]
     Route: 065

REACTIONS (2)
  - HEPATITIS [None]
  - HEPATOCELLULAR DAMAGE [None]
